FAERS Safety Report 9749831 (Version 1)
Quarter: 2013Q4

REPORT INFORMATION
  Report Type: Spontaneous
  Country: US (occurrence: US)
  Receive Date: 20131212
  Receipt Date: 20131212
  Transmission Date: 20140711
  Serious: No
  Sender: FDA-Public Use
  Company Number: US-PFIZER INC-2013351009

PATIENT
  Age: 87 Year
  Sex: Male
  Weight: 81.63 kg

DRUGS (6)
  1. ADVIL [Suspect]
     Indication: BACK PAIN
     Dosage: 200 MG, 2X/DAY
     Route: 048
     Dates: start: 201311, end: 20131203
  2. WARFARIN [Concomitant]
     Indication: ANTICOAGULANT THERAPY
     Dosage: UNK
  3. GLYBURIDE [Concomitant]
     Indication: DIABETES MELLITUS
     Dosage: UNK
  4. METFORMIN [Concomitant]
     Indication: DIABETES MELLITUS
     Dosage: UNK
  5. NIFEDIPINE [Concomitant]
     Indication: HYPERTENSION
     Dosage: UNK
  6. CHLORPHENIRAMINE [Concomitant]
     Indication: SNEEZING
     Dosage: 4 MG, AS NEEDED
     Route: 048
     Dates: end: 20131203

REACTIONS (1)
  - Full blood count increased [Unknown]
